FAERS Safety Report 23067451 (Version 2)
Quarter: 2023Q4

REPORT INFORMATION
  Report Type: Report from Study
  Country: US (occurrence: US)
  Receive Date: 20231016
  Receipt Date: 20231229
  Transmission Date: 20240110
  Serious: No
  Sender: FDA-Public Use
  Company Number: US-002147023-NVSC2023US222033

PATIENT
  Sex: Female

DRUGS (1)
  1. KESIMPTA [Suspect]
     Active Substance: OFATUMUMAB
     Indication: Product used for unknown indication
     Dosage: UNK
     Route: 065

REACTIONS (5)
  - Fatigue [Recovered/Resolved]
  - Arthralgia [Recovered/Resolved]
  - Feeling of body temperature change [Recovered/Resolved]
  - Hypoacusis [Recovered/Resolved]
  - Balance disorder [Recovered/Resolved]
